FAERS Safety Report 8386192-0 (Version None)
Quarter: 2012Q2

REPORT INFORMATION
  Report Type: 
  Country: None (occurrence: None)
  Receive Date: 20120525
  Receipt Date: 20120514
  Transmission Date: 20120825
  Serious: Yes (Other)
  Sender: FDA-Public Use
  Company Number: US-EISAI INC-E3810-05524-SPO-US

PATIENT
  Sex: Female

DRUGS (2)
  1. MICARDIS [Concomitant]
     Indication: BLOOD PRESSURE
     Route: 065
  2. RABEPRAZOLE SODIUM [Suspect]
     Route: 048

REACTIONS (4)
  - ASTHENIA [None]
  - HYPERTENSION [None]
  - GAIT DISTURBANCE [None]
  - ARTHRITIS [None]
